FAERS Safety Report 4757372-8 (Version None)
Quarter: 2005Q3

REPORT INFORMATION
  Report Type: 
  Country: None (occurrence: None)
  Receive Date: 20050831
  Receipt Date: 20050822
  Transmission Date: 20060218
  Serious: Yes (Death, Hospitalization)
  Sender: FDA-Public Use
  Company Number: US-JNJFOC-20040403117

PATIENT
  Sex: Female

DRUGS (4)
  1. DURAGESIC-100 [Suspect]
     Route: 062
  2. DURAGESIC-100 [Suspect]
     Route: 062
  3. PERCOCET [Concomitant]
     Route: 048
  4. PERCOCET [Concomitant]
     Indication: PAIN
     Route: 048

REACTIONS (6)
  - COMA [None]
  - COUGH [None]
  - LETHARGY [None]
  - MYOCARDIAL INFARCTION [None]
  - OVERDOSE [None]
  - WHEEZING [None]
